FAERS Safety Report 16923888 (Version 1)
Quarter: 2019Q4

REPORT INFORMATION
  Report Type: Spontaneous
  Country: FR (occurrence: FR)
  Receive Date: 20191016
  Receipt Date: 20191016
  Transmission Date: 20200122
  Serious: Yes (Hospitalization, Other)
  Sender: FDA-Public Use
  Company Number: FR-ACCORD-157849

PATIENT
  Age: 46 Year
  Sex: Female

DRUGS (1)
  1. ARIPIPRAZOLE. [Suspect]
     Active Substance: ARIPIPRAZOLE
     Indication: DEPRESSION
     Dosage: SINCE 2 YEARS

REACTIONS (3)
  - Acute respiratory failure [Unknown]
  - Diabetic ketoacidosis [Unknown]
  - Hyperlipidaemia [Unknown]
